FAERS Safety Report 8213229-1 (Version None)
Quarter: 2012Q1

REPORT INFORMATION
  Report Type: 
  Country: None (occurrence: None)
  Receive Date: 20120315
  Receipt Date: 20120312
  Transmission Date: 20120608
  Serious: Yes (Hospitalization)
  Sender: FDA-Public Use
  Company Number: FR-PFIZER INC-2012064093

PATIENT
  Age: 60 Year
  Sex: Male

DRUGS (9)
  1. ACETAMINOPHEN W/ CODEINE [Suspect]
     Indication: SCIATICA
     Dosage: 2 DF, EVERY 6 HOURS
     Route: 048
     Dates: start: 20111208, end: 20111208
  2. KETOPROFEN [Suspect]
     Indication: SCIATICA
     Dosage: 50 MG, 2X/DAY
     Route: 048
     Dates: start: 20111208, end: 20111209
  3. LOSARTAN POTASSIUM AND HYDROCHLOROTHIAZIDE [Concomitant]
  4. HYDREA [Concomitant]
     Indication: THROMBOCYTOSIS
  5. PEGASYS [Concomitant]
  6. TEMAZEPAM [Suspect]
     Indication: SCIATICA
     Dosage: 25 MG A DAY
     Route: 048
     Dates: start: 20111207, end: 20111208
  7. NEURONTIN [Suspect]
     Indication: SCIATICA
     Dosage: 100 MG, 3X/DAY
     Route: 048
     Dates: start: 20111208, end: 20111209
  8. NEXIUM [Suspect]
     Dosage: 20 MG, 1X/DAY
     Route: 048
     Dates: start: 20111207, end: 20111208
  9. ASPIRIN [Concomitant]

REACTIONS (1)
  - NEUTROPENIA [None]
